FAERS Safety Report 13853189 (Version 1)
Quarter: 2017Q3

REPORT INFORMATION
  Report Type: Spontaneous
  Country: US (occurrence: US)
  Receive Date: 20170809
  Receipt Date: 20170809
  Transmission Date: 20171127
  Serious: Yes (Death)
  Sender: FDA-Public Use
  Company Number: None

PATIENT
  Age: 85 Year
  Sex: Male
  Weight: 68.85 kg

DRUGS (1)
  1. PEMBROLIZUMAB. [Suspect]
     Active Substance: PEMBROLIZUMAB
     Indication: NON-SMALL CELL LUNG CANCER
     Dosage: OTHER FREQUENCY:Q 21 DAYS;?
     Route: 041
     Dates: start: 20170613, end: 20170707

REACTIONS (1)
  - Nervous system disorder [None]

NARRATIVE: CASE EVENT DATE: 20170801
